FAERS Safety Report 17532877 (Version 1)
Quarter: 2020Q1

REPORT INFORMATION
  Report Type: Spontaneous
  Country: FR (occurrence: FR)
  Receive Date: 20200312
  Receipt Date: 20200312
  Transmission Date: 20200409
  Serious: Yes (Hospitalization)
  Sender: FDA-Public Use
  Company Number: NVSC2020FR069443

PATIENT
  Age: 71 Year
  Sex: Male
  Weight: 94 kg

DRUGS (4)
  1. KYMRIAH [Suspect]
     Active Substance: TISAGENLECLEUCEL
     Indication: DIFFUSE LARGE B-CELL LYMPHOMA RECURRENT
     Dosage: 1 DF, ONCE/SINGLE (TOTAL)
     Route: 042
     Dates: start: 20200120, end: 20200120
  2. VANCOMYCINE [Concomitant]
     Active Substance: VANCOMYCIN
     Indication: PROPHYLAXIS
     Dosage: UNK
     Route: 065
     Dates: start: 20200124, end: 20200128
  3. ROACTEMRA [Suspect]
     Active Substance: TOCILIZUMAB
     Indication: CYTOKINE RELEASE SYNDROME
     Dosage: 8 MG/KG, QD
     Route: 042
     Dates: start: 20200123, end: 20200124
  4. TAZOBACTAM [Concomitant]
     Active Substance: TAZOBACTAM
     Indication: PROPHYLAXIS
     Route: 065
     Dates: start: 20200124, end: 20200128

REACTIONS (2)
  - Hepatocellular injury [Recovering/Resolving]
  - Cytokine release syndrome [Recovering/Resolving]

NARRATIVE: CASE EVENT DATE: 20200120
